FAERS Safety Report 5076624-8 (Version None)
Quarter: 2006Q3

REPORT INFORMATION
  Report Type: 
  Country: None (occurrence: None)
  Receive Date: 20060725
  Receipt Date: 20060120
  Transmission Date: 20061208
  Serious: No
  Sender: FDA-Public Use
  Company Number: 200610408BWH

PATIENT
  Age: 48 Year
  Sex: Male

DRUGS (2)
  1. SORAFENIB [Suspect]
     Indication: RENAL CELL CARCINOMA STAGE UNSPECIFIED
     Dosage: 400 MG, BID, ORAL
     Route: 048
     Dates: start: 20051212
  2. DILANTIN [Concomitant]

REACTIONS (4)
  - BLOOD PRESSURE INCREASED [None]
  - HYPERSENSITIVITY [None]
  - MADAROSIS [None]
  - SENSORY DISTURBANCE [None]
